FAERS Safety Report 6288408-3 (Version None)
Quarter: 2009Q3

REPORT INFORMATION
  Report Type: 
  Country: None (occurrence: None)
  Receive Date: 20090729
  Receipt Date: 20090721
  Transmission Date: 20100115
  Serious: Yes (Congenital Anomaly)
  Sender: FDA-Public Use
  Company Number: A0787214A

PATIENT

DRUGS (5)
  1. LAMIVUDINE [Suspect]
     Indication: HIV INFECTION
  2. VIREAD [Suspect]
     Indication: HIV INFECTION
     Dosage: 1TAB PER DAY
  3. SAQUINAVIR [Suspect]
     Indication: HIV INFECTION
  4. ZERIT [Suspect]
     Indication: HIV INFECTION
  5. NORVIR [Suspect]
     Indication: HIV INFECTION

REACTIONS (4)
  - CONGENITAL CLAVICULAR AGENESIS [None]
  - CYTOGENETIC ABNORMALITY [None]
  - DRUG EXPOSURE DURING PREGNANCY [None]
  - SKULL MALFORMATION [None]
